FAERS Safety Report 8063752-8 (Version None)
Quarter: 2012Q1

REPORT INFORMATION
  Report Type: 
  Country: None (occurrence: None)
  Receive Date: 20120123
  Receipt Date: 20120120
  Transmission Date: 20120608
  Serious: Yes (Death, Hospitalization, Other)
  Sender: FDA-Public Use
  Company Number: PHHY2011US82145

PATIENT

DRUGS (1)
  1. PREDNISONE [Suspect]
     Indication: DERMATOMYOSITIS
     Dosage: 60 MG PER DAY

REACTIONS (10)
  - PNEUMOCYSTIS JIROVECI PNEUMONIA [None]
  - ARTHRALGIA [None]
  - DYSPNOEA [None]
  - RESPIRATORY FAILURE [None]
  - TACHYCARDIA [None]
  - SWELLING FACE [None]
  - RESPIRATORY ALKALOSIS [None]
  - COUGH [None]
  - PYREXIA [None]
  - HYPOXIA [None]
